FAERS Safety Report 7325381-0 (Version None)
Quarter: 2011Q1

REPORT INFORMATION
  Report Type: 
  Country: None (occurrence: None)
  Receive Date: 20110302
  Receipt Date: 20110221
  Transmission Date: 20110831
  Serious: Yes (Hospitalization)
  Sender: FDA-Public Use
  Company Number: GB-JNJFOC-20110207124

PATIENT
  Sex: Male
  Weight: 51.3 kg

DRUGS (2)
  1. REMICADE [Suspect]
     Indication: CROHN'S DISEASE
     Route: 042
  2. ADALIMUMAB [Concomitant]
     Indication: CROHN'S DISEASE

REACTIONS (3)
  - ANASTOMOTIC LEAK [None]
  - INTESTINAL STENOSIS [None]
  - CROHN'S DISEASE [None]
